FAERS Safety Report 7289540-8 (Version None)
Quarter: 2011Q1

REPORT INFORMATION
  Report Type: 
  Country: None (occurrence: None)
  Receive Date: 20110213
  Receipt Date: 20110210
  Transmission Date: 20110831
  Serious: Yes (Hospitalization)
  Sender: FDA-Public Use
  Company Number: US-BRISTOL-MYERS SQUIBB COMPANY-15402472

PATIENT
  Age: 65 Year
  Sex: Female

DRUGS (2)
  1. XL281 [Suspect]
     Indication: COLORECTAL CANCER METASTATIC
     Dosage: COURSE-1
     Route: 048
     Dates: start: 20101026
  2. CETUXIMAB [Suspect]
     Indication: COLORECTAL CANCER METASTATIC
     Dosage: 800MG:27OCT10.500MG:03NOV10-ONG
     Route: 042
     Dates: start: 20101027

REACTIONS (2)
  - HEMIPARESIS [None]
  - URINARY TRACT INFECTION [None]
